FAERS Safety Report 6232111-2 (Version None)
Quarter: 2009Q2

REPORT INFORMATION
  Report Type: 
  Country: None (occurrence: None)
  Receive Date: 20090616
  Receipt Date: 20090609
  Transmission Date: 20091009
  Serious: Yes (Other)
  Sender: FDA-Public Use
  Company Number: US-JNJCH-2009012017

PATIENT
  Sex: Female
  Weight: 78 kg

DRUGS (2)
  1. PURELL WITH ALOE [Suspect]
     Indication: ACCIDENTAL EXPOSURE
     Dosage: TEXT:ONCE
     Route: 047
     Dates: start: 20090427, end: 20090427
  2. DARVOCET [Concomitant]
     Indication: NECK PAIN
     Dosage: TEXT:UNSPECIFIED
     Route: 065

REACTIONS (4)
  - CAUSTIC INJURY [None]
  - CHEMICAL BURNS OF EYE [None]
  - INCORRECT ROUTE OF DRUG ADMINISTRATION [None]
  - VISION BLURRED [None]
